FAERS Safety Report 26127470 (Version 1)
Quarter: 2025Q4

REPORT INFORMATION
  Report Type: Spontaneous
  Country: US (occurrence: US)
  Receive Date: 20251205
  Receipt Date: 20251205
  Transmission Date: 20260117
  Serious: Yes (Other)
  Sender: ELI LILLY AND COMPANY
  Company Number: US-ELI_LILLY_AND_COMPANY-US202511032804

PATIENT
  Age: 78 Year
  Sex: Male

DRUGS (1)
  1. ZEPBOUND [Suspect]
     Active Substance: TIRZEPATIDE
     Indication: Weight control
     Dosage: 2.5 MG, UNKNOWN
     Route: 058
     Dates: start: 20251018

REACTIONS (7)
  - Seizure [Recovering/Resolving]
  - Feeling cold [Recovering/Resolving]
  - Disorientation [Recovering/Resolving]
  - Hypersomnia [Recovering/Resolving]
  - Pain [Recovering/Resolving]
  - Decreased appetite [Recovering/Resolving]
  - Fatigue [Unknown]

NARRATIVE: CASE EVENT DATE: 20251122
